FAERS Safety Report 5618493-0 (Version None)
Quarter: 2008Q1

REPORT INFORMATION
  Report Type: 
  Country: None (occurrence: None)
  Receive Date: 20080207
  Receipt Date: 20080204
  Transmission Date: 20080703
  Serious: Yes (Other)
  Sender: FDA-Public Use
  Company Number: B0506606A

PATIENT
  Age: 81 Year
  Sex: Female

DRUGS (4)
  1. AUGMENTIN '125' [Suspect]
     Indication: UPPER RESPIRATORY TRACT INFECTION
     Dosage: 2G PER DAY
     Route: 048
     Dates: start: 20080130, end: 20080130
  2. ASPIRIN [Concomitant]
     Dosage: 100MG PER DAY
     Route: 048
  3. QUINAZIDE [Concomitant]
     Dosage: 16MG PER DAY
     Route: 048
  4. LANSOPRAZOLE [Concomitant]
     Route: 048

REACTIONS (2)
  - SYNCOPE [None]
  - URTICARIA [None]
